FAERS Safety Report 8061914-7 (Version None)
Quarter: 2012Q1

REPORT INFORMATION
  Report Type: 
  Country: None (occurrence: None)
  Receive Date: 20120117
  Receipt Date: 20120104
  Transmission Date: 20120608
  Serious: Yes (Other)
  Sender: FDA-Public Use
  Company Number: 2012AP000021

PATIENT
  Age: 54 Year
  Sex: Female

DRUGS (3)
  1. VALPROIC ACID SYRUP [Suspect]
     Indication: CONVULSION
     Dosage: 1500 MG; IVBOL
     Route: 040
  2. DIVALPROEX SODIUM [Suspect]
     Indication: CONVULSION
     Dosage: 750 MG;QD
  3. DORIPENEM [Suspect]
     Indication: PRODUCT USED FOR UNKNOWN INDICATION
     Dosage: 500 MG;Q8H;IV
     Route: 042

REACTIONS (2)
  - DRUG LEVEL DECREASED [None]
  - DRUG INTERACTION [None]
